FAERS Safety Report 6992421-8 (Version None)
Quarter: 2010Q3

REPORT INFORMATION
  Report Type: 
  Country: None (occurrence: None)
  Receive Date: 20100917
  Receipt Date: 20100903
  Transmission Date: 20110219
  Serious: Yes (Hospitalization, Other)
  Sender: FDA-Public Use
  Company Number: PHHY2010FR57976

PATIENT
  Age: 86 Year
  Sex: Male

DRUGS (4)
  1. RASILEZ [Suspect]
     Indication: HYPERTENSION
     Dosage: 150 MG DAILY
     Route: 048
     Dates: start: 20091009, end: 20100625
  2. RASILEZ HCT [Suspect]
     Indication: HYPERTENSION
     Dosage: 300 MG DAILY
     Dates: start: 20100626, end: 20100628
  3. NSAID'S [Suspect]
  4. CANDESARTAN CILEXETIL/HYDROCHLOROTHIAZIDE (ATACAND HCT) [Suspect]
     Indication: HYPERTENSION
     Dosage: 8 MG DAILY
     Dates: start: 20091009, end: 20100625

REACTIONS (6)
  - ASTHENIA [None]
  - BLOOD CREATININE INCREASED [None]
  - BLOOD PRESSURE INADEQUATELY CONTROLLED [None]
  - FLUID REPLACEMENT [None]
  - OEDEMA PERIPHERAL [None]
  - RENAL FAILURE [None]
